FAERS Safety Report 9390888 (Version 1)
Quarter: 2013Q3

REPORT INFORMATION
  Report Type: Spontaneous
  Country: DE (occurrence: None)
  Receive Date: 20130705
  Receipt Date: 20130705
  Transmission Date: 20140515
  Serious: Yes (Hospitalization)
  Sender: FDA-Public Use
  Company Number: DE-023356

PATIENT
  Age: 68 Year
  Sex: Male

DRUGS (25)
  1. CHLORAMBUCIL [Suspect]
     Indication: CHRONIC LYMPHOCYTIC LEUKAEMIA
     Dosage: 1 IN 2 WEEKS
     Route: 048
     Dates: start: 20100914, end: 20110308
  2. RITUXIMAB [Suspect]
     Indication: CHRONIC LYMPHOCYTIC LEUKAEMIA
     Dosage: 1 IN 1 MONTHS
     Route: 042
     Dates: start: 20100914, end: 20110222
  3. RAMIPRIL [Concomitant]
  4. FERROSANOL [Concomitant]
  5. ASS [Concomitant]
  6. AMPHO-MORONAL [Concomitant]
  7. AMLODIPINE [Concomitant]
  8. ATACAND [Concomitant]
  9. SIMVASTATIN [Concomitant]
  10. PENTALONG [Concomitant]
  11. PANTOZOL [Concomitant]
  12. PREDNISOLON [Concomitant]
  13. SALMETEROL [Concomitant]
  14. AMIODARONE [Concomitant]
  15. TORASEMIDE [Concomitant]
  16. MARCUMAR [Concomitant]
  17. METOPROLOL [Concomitant]
  18. DREISAVIT (ASCORBIC ACID (VITAMIN C) [Concomitant]
  19. PANTOTHENIC ACID (VITAMIN B-COMPLEX, PLAIN) [Concomitant]
  20. ASCORBIC ACID [Concomitant]
  21. PYRIDOXINE HYDROCHLORIDE (PYRIDOXINE (VIT B6)) [Concomitant]
  22. NIACINAMIDE (VITAMIN B-COMPLEX, PLAIN) [Concomitant]
  23. RIBOFLAVINE (RIBOFLAVIN (VIT B2)) [Concomitant]
  24. FOLIC ACID [Concomitant]
  25. SULTANOL (SALBUTAMOL) [Concomitant]

REACTIONS (17)
  - Chronic obstructive pulmonary disease [None]
  - Endocarditis [None]
  - Rash [None]
  - Cellulitis [None]
  - Ischaemia [None]
  - Temporomandibular joint syndrome [None]
  - Effusion [None]
  - Staphylococcal infection [None]
  - Mitral valve incompetence [None]
  - Sepsis [None]
  - Herpes virus infection [None]
  - Febrile neutropenia [None]
  - Pneumonia [None]
  - Coronary artery disease [None]
  - Atrial fibrillation [None]
  - Dialysis [None]
  - Renal failure [None]
